FAERS Safety Report 16559862 (Version 1)
Quarter: 2019Q3

REPORT INFORMATION
  Report Type: Spontaneous
  Country: US (occurrence: US)
  Receive Date: 20190710
  Receipt Date: 20190710
  Transmission Date: 20191004
  Serious: Yes (Other)
  Sender: FDA-Public Use
  Company Number: None

PATIENT
  Age: 78 Year
  Sex: Female
  Weight: 74.25 kg

DRUGS (12)
  1. TIZANIDINE. [Concomitant]
     Active Substance: TIZANIDINE
  2. DULOXETINE. [Concomitant]
     Active Substance: DULOXETINE
  3. ZOLPIDEM [Concomitant]
     Active Substance: ZOLPIDEM TARTRATE
  4. OMEPRAZOLE. [Concomitant]
     Active Substance: OMEPRAZOLE
  5. MUPIROCIN OINTMENT USP 2% FOR DERMATOLOGIC USE ONLY (NOT INTRANASAL) [Suspect]
     Active Substance: MUPIROCIN
     Indication: NASAL CRUSTING
     Dosage: ?          QUANTITY:1 22 GRAMS;OTHER ROUTE:INTRANASAL?
  6. BACLOFEN. [Concomitant]
     Active Substance: BACLOFEN
  7. VITAMIN D [Concomitant]
     Active Substance: VITAMIN D NOS
  8. FEM FLORA [Concomitant]
  9. AMOX-CLAV [Concomitant]
     Active Substance: AMOXICILLIN\CLAVULANATE POTASSIUM
  10. VITAMIN B12 [Concomitant]
     Active Substance: CYANOCOBALAMIN
  11. SUCRALFATE. [Concomitant]
     Active Substance: SUCRALFATE
  12. VALSARTAN. [Concomitant]
     Active Substance: VALSARTAN

REACTIONS (7)
  - Heart rate increased [None]
  - Dyspnoea [None]
  - Product dispensing error [None]
  - Incorrect product dosage form administered [None]
  - Dizziness [None]
  - Hypertension [None]
  - Headache [None]

NARRATIVE: CASE EVENT DATE: 20190708
